FAERS Safety Report 4877052-8 (Version None)
Quarter: 2005Q4

REPORT INFORMATION
  Report Type: 
  Country: None (occurrence: None)
  Receive Date: 20051206
  Receipt Date: 20050816
  Transmission Date: 20060501
  Serious: No
  Sender: FDA-Public Use
  Company Number: USA0508105653

PATIENT
  Age: 60 Year
  Sex: Female

DRUGS (3)
  1. CYMBALTA [Suspect]
     Indication: NEUROPATHY
     Dosage: 30 MG/2 DAY
     Dates: start: 20050521
  2. SYNTHROID [Concomitant]
  3. VALIUM [Concomitant]

REACTIONS (4)
  - AGITATION [None]
  - INSOMNIA [None]
  - LIBIDO DECREASED [None]
  - LIBIDO DISORDER [None]
